FAERS Safety Report 7507359-7 (Version None)
Quarter: 2011Q2

REPORT INFORMATION
  Report Type: 
  Country: None (occurrence: None)
  Receive Date: 20110526
  Receipt Date: 20110523
  Transmission Date: 20111010
  Serious: Yes (Hospitalization)
  Sender: FDA-Public Use
  Company Number: NL-ABBOTT-11P-114-0728107-00

PATIENT
  Sex: Male
  Weight: 42.5 kg

DRUGS (7)
  1. METHOTREXATE [Concomitant]
     Indication: JUVENILE ARTHRITIS
     Dosage: 20 MG ONCE A WEEK
     Route: 058
     Dates: start: 20100701, end: 20101201
  2. METHOTREXATE [Concomitant]
     Dosage: 3-2.5MG TABS WEEKLY
     Route: 048
     Dates: start: 20101201
  3. PREDNISOLONE [Concomitant]
     Indication: ANTIINFLAMMATORY THERAPY
     Route: 048
     Dates: start: 20101201, end: 20110301
  4. HUMIRA [Suspect]
     Route: 058
     Dates: start: 20101201
  5. FOLIC ACID [Concomitant]
     Indication: VITAMIN SUPPLEMENTATION
     Dosage: 1 TAB TWICE DAILY EXC DAY OF MTX ADMIN
     Route: 048
     Dates: start: 20101201
  6. HUMIRA [Suspect]
     Indication: JUVENILE ARTHRITIS
     Route: 058
     Dates: start: 20101201
  7. HUMIRA [Suspect]
     Indication: JUVENILE ARTHRITIS
     Route: 058
     Dates: start: 20100722, end: 20101201

REACTIONS (7)
  - INJECTION SITE SWELLING [None]
  - IRON DEFICIENCY [None]
  - GASTROINTESTINAL INFLAMMATION [None]
  - INJECTION SITE ERYTHEMA [None]
  - WEIGHT DECREASED [None]
  - INJECTION SITE PAIN [None]
  - INJECTION SITE PRURITUS [None]
